FAERS Safety Report 19773892 (Version 1)
Quarter: 2021Q3

REPORT INFORMATION
  Report Type: Spontaneous
  Country: US (occurrence: US)
  Receive Date: 20210901
  Receipt Date: 20210901
  Transmission Date: 20211014
  Serious: No
  Sender: FDA-Public Use
  Company Number: US-ASTRAZENECA-2021A669275

PATIENT
  Age: 80 Year
  Sex: Female
  Weight: 61.2 kg

DRUGS (1)
  1. BREZTRI AEROSPHERE [Suspect]
     Active Substance: BUDESONIDE\FORMOTEROL\GLYCOPYRRONIUM
     Indication: CHRONIC OBSTRUCTIVE PULMONARY DISEASE
     Dosage: 2 PUFFS, ONCE DAILY
     Route: 055
     Dates: start: 202105, end: 2021

REACTIONS (10)
  - Wheezing [Unknown]
  - Increased bronchial secretion [Unknown]
  - Dysphonia [Unknown]
  - Bone pain [Unknown]
  - Asthma [Unknown]
  - Device issue [Unknown]
  - Candida infection [Unknown]
  - Tremor [Unknown]
  - Cough [Unknown]
  - Cystitis [Unknown]

NARRATIVE: CASE EVENT DATE: 2021
